FAERS Safety Report 4693830-2 (Version None)
Quarter: 2005Q2

REPORT INFORMATION
  Report Type: 
  Country: None (occurrence: None)
  Receive Date: 20050616
  Receipt Date: 20050608
  Transmission Date: 20051028
  Serious: Yes (Life-Threatening)
  Sender: FDA-Public Use
  Company Number: 200511876GDS

PATIENT
  Age: 80 Year
  Sex: Female

DRUGS (3)
  1. ASPIRIN [Suspect]
     Indication: COUGH
     Dosage: 500 MG, TOTAL DAILY, ORAL
     Route: 048
     Dates: start: 20040615, end: 20040617
  2. ASPIRIN [Suspect]
     Indication: NASOPHARYNGITIS
     Dosage: 500 MG, TOTAL DAILY, ORAL
     Route: 048
     Dates: start: 20040615, end: 20040617
  3. AZITROMICINA ALTER [Concomitant]

REACTIONS (1)
  - HAEMOPTYSIS [None]
